FAERS Safety Report 7921104-2 (Version None)
Quarter: 2011Q4

REPORT INFORMATION
  Report Type: 
  Country: None (occurrence: None)
  Receive Date: 20111117
  Receipt Date: 20111107
  Transmission Date: 20120403
  Serious: Yes (Other)
  Sender: FDA-Public Use
  Company Number: US-BAYER-2011-108112

PATIENT
  Sex: Female

DRUGS (8)
  1. YASMIN [Suspect]
     Indication: CONTRACEPTION
     Dosage: UNK
     Route: 048
     Dates: start: 20060301, end: 20080101
  2. DROSPIRENONE AND ETHINYL ESTRADIOL [Suspect]
     Indication: CONTRACEPTION
     Dosage: UNK
     Route: 048
     Dates: start: 20080101, end: 20091101
  3. YASMIN [Suspect]
     Indication: OESTROGEN THERAPY
  4. YASMIN [Suspect]
     Indication: PROGESTIN THERAPY
  5. DROSPIRENONE AND ETHINYL ESTRADIOL [Suspect]
     Indication: MENSTRUAL CYCLE MANAGEMENT
  6. YASMIN [Suspect]
     Indication: MENSTRUAL CYCLE MANAGEMENT
  7. DROSPIRENONE AND ETHINYL ESTRADIOL [Suspect]
     Indication: PROGESTIN THERAPY
  8. DROSPIRENONE AND ETHINYL ESTRADIOL [Suspect]
     Indication: OESTROGEN THERAPY

REACTIONS (8)
  - GASTROINTESTINAL DISORDER [None]
  - PSYCHOLOGICAL TRAUMA [None]
  - ANXIETY [None]
  - INJURY [None]
  - POST CHOLECYSTECTOMY SYNDROME [None]
  - GALLBLADDER PAIN [None]
  - GALLBLADDER DISORDER [None]
  - PAIN [None]
